FAERS Safety Report 5620697-8 (Version None)
Quarter: 2008Q1

REPORT INFORMATION
  Report Type: 
  Country: None (occurrence: None)
  Receive Date: 20080208
  Receipt Date: 20080131
  Transmission Date: 20080703
  Serious: Yes (Hospitalization)
  Sender: FDA-Public Use
  Company Number: SE-ABBOTT-08P-150-0436064-00

PATIENT
  Age: 61 Year
  Sex: Female

DRUGS (62)
  1. ZEMPLAR SOLUTION F INJECTION [Suspect]
     Indication: BLOOD CALCIUM
     Dosage: 5MCG/ML
     Route: 050
  2. ZEMPLAR SOLUTION F INJECTION [Suspect]
     Indication: BLOOD PHOSPHORUS
  3. SODIUM BICARBONATE [Concomitant]
     Indication: PROPHYLAXIS
     Route: 048
  4. SODIUM BICARBONATE [Concomitant]
     Indication: ANTACID THERAPY
  5. OMEPRAZOLE [Concomitant]
     Indication: PROPHYLAXIS
     Route: 048
  6. OMEPRAZOLE [Concomitant]
     Indication: GASTROOESOPHAGEAL REFLUX DISEASE
  7. LACTULOSE [Concomitant]
     Indication: CONSTIPATION PROPHYLAXIS
     Route: 048
  8. PARENTROVITE [Concomitant]
     Indication: SUPPLEMENTATION THERAPY
     Route: 048
  9. PARENTROVITE [Concomitant]
     Indication: CARDIOVASCULAR EVENT PROPHYLAXIS
  10. PARENTROVITE [Concomitant]
     Indication: DIALYSIS
  11. LANTUS OPTISET [Concomitant]
     Indication: TYPE 2 DIABETES MELLITUS
     Dosage: 100 IU/ML
  12. HEPAGRISEVIT FORTE-N [Concomitant]
     Indication: CARDIOVASCULAR EVENT PROPHYLAXIS
     Route: 048
  13. HEPAGRISEVIT FORTE-N [Concomitant]
     Indication: DIALYSIS
  14. CLOPIDOGREL [Concomitant]
     Indication: THROMBOSIS PROPHYLAXIS
     Route: 048
  15. ASPIRIN [Concomitant]
     Indication: THROMBOSIS PROPHYLAXIS
     Route: 048
  16. DARBEPOETIN ALFA [Concomitant]
     Indication: DRUG USE FOR UNKNOWN INDICATION
     Dosage: PRE-FILLED INJECTION
     Route: 050
  17. RAMIPRIL [Concomitant]
     Indication: DRUG USE FOR UNKNOWN INDICATION
     Route: 048
  18. INSULIN [Concomitant]
     Indication: TYPE 2 DIABETES MELLITUS
     Dosage: PEN; 100 UNITS/ML
     Route: 058
  19. DIGOXIN [Concomitant]
     Indication: ARRHYTHMIA PROPHYLAXIS
     Route: 048
  20. ISOSORBIDE MONONITRATE [Concomitant]
     Indication: ANGINA PECTORIS
     Route: 048
  21. ISOSORBIDE MONONITRATE [Concomitant]
     Indication: PROPHYLAXIS
     Dosage: NON-DIALYSIS DAYS
  22. METOPROLOL SUCCINATE [Concomitant]
     Indication: CARDIOVASCULAR EVENT PROPHYLAXIS
     Route: 048
  23. METOPROLOL SUCCINATE [Concomitant]
     Indication: PALPITATIONS
  24. METOPROLOL SUCCINATE [Concomitant]
     Indication: PROPHYLAXIS
  25. ATORVASTATIN CALCIUM [Concomitant]
     Indication: DRUG USE FOR UNKNOWN INDICATION
     Route: 048
  26. PREDNISOLONE [Concomitant]
     Indication: ARTHRALGIA
     Route: 048
  27. FENTANYL [Concomitant]
     Indication: ANALGESIC THERAPY
     Dosage: DEPOT PLASTER
     Route: 062
  28. GABAPENTIN [Concomitant]
     Indication: PROPHYLAXIS
     Route: 048
  29. GABAPENTIN [Concomitant]
     Indication: NEURALGIA
  30. GABAPENTIN [Concomitant]
  31. GABAPENTIN [Concomitant]
     Indication: BONE PAIN
  32. LEVOMEPROMAZINE [Concomitant]
     Indication: SLEEP DISORDER THERAPY
     Route: 048
  33. DIXYRAZINE [Concomitant]
     Indication: RESTLESSNESS
     Route: 048
  34. OXAZEPAM [Concomitant]
     Indication: RESTLESSNESS
     Route: 048
  35. ZOLPIDEM TARTRATE [Concomitant]
     Indication: SLEEP DISORDER THERAPY
     Route: 048
  36. CITALOPRAM HYDROBROMIDE [Concomitant]
     Indication: DEPRESSED MOOD
     Route: 048
  37. CITALOPRAM HYDROBROMIDE [Concomitant]
     Route: 048
  38. SEVELAMER [Concomitant]
     Indication: BLOOD PHOSPHORUS INCREASED
     Dosage: 2 TABS AT BREAKFAST, 2 TABS AT LUNCH, 4 TABS AT DINNER
     Route: 048
  39. SUCRALFATE [Concomitant]
     Indication: GASTROOESOPHAGEAL REFLUX DISEASE
     Dosage: 200MG/ML
     Route: 048
  40. GAVISCON [Concomitant]
     Indication: DYSPEPSIA
     Route: 048
  41. GAVISCON [Concomitant]
     Indication: OESOPHAGEAL DISORDER
  42. SODIUM PICOSULFATE [Concomitant]
     Indication: CONSTIPATION PROPHYLAXIS
     Dosage: 7.5 MG/ML
     Route: 048
  43. GLYCERYL TRINITRATE [Concomitant]
     Indication: ANGINA PECTORIS
     Route: 060
  44. GLYCERYL TRINITRATE [Concomitant]
     Indication: PROPHYLAXIS
  45. NYSTATIN [Concomitant]
     Indication: PROPHYLAXIS
     Dosage: 100000 IU/ML
     Route: 048
  46. NYSTATIN [Concomitant]
     Indication: ORAL FUNGAL INFECTION
  47. METOPROLOL SUCCINATE [Concomitant]
     Dosage: 25-50 MG
     Route: 048
  48. METOPROLOL SUCCINATE [Concomitant]
  49. DAKTACORT [Concomitant]
     Indication: DRUG USE FOR UNKNOWN INDICATION
     Route: 061
  50. BETNOVAT CUTANEOUS SOLUTION [Concomitant]
     Indication: DRUG USE FOR UNKNOWN INDICATION
     Dosage: 1 MG/ML
     Route: 003
  51. NABUMETONE [Concomitant]
     Indication: ARTHRALGIA
     Route: 048
  52. NABUMETONE [Concomitant]
     Indication: MYALGIA
  53. OXYCODONE HYDROCHLORIDE [Concomitant]
     Indication: ANALGESIA
     Route: 048
  54. ALVEDON FORTE [Concomitant]
     Indication: ANALGESIA
     Route: 048
  55. BUDESONIDE [Concomitant]
     Indication: PROPHYLAXIS
     Dosage: 1 SPRAY EACH NOSTRIL DAILY PERIODICALLY AS NEEDED
     Route: 045
  56. BUDESONIDE [Concomitant]
     Indication: RHINITIS ALLERGIC
  57. ACETYLCYSTEIN EFFERVICENT TABS [Concomitant]
     Indication: PROPHYLAXIS
     Dosage: 400-600MG
     Route: 048
  58. ACETYLCYSTEIN EFFERVICENT TABS [Concomitant]
     Indication: INCREASED UPPER AIRWAY SECRETION
  59. COCILLANA-ETYFIN [Concomitant]
     Indication: PROPHYLAXIS
     Dosage: 5-10 ML
     Route: 048
  60. COCILLANA-ETYFIN [Concomitant]
     Indication: COUGH
  61. LEVOCABASTINE HYDROCHLORIDE [Concomitant]
     Indication: PROPHYLAXIS
     Dosage: 0.5 MG/ML PERIODICALLY AS NEEDED
     Route: 047
  62. LEVOCABASTINE HYDROCHLORIDE [Concomitant]
     Indication: EYE ALLERGY

REACTIONS (10)
  - ANXIETY [None]
  - BLOOD GLUCOSE INCREASED [None]
  - BLOOD PRESSURE INCREASED [None]
  - DEPRESSED MOOD [None]
  - FATIGUE [None]
  - MICTURITION URGENCY [None]
  - PAIN [None]
  - THROMBOSIS [None]
  - URINARY BLADDER HAEMORRHAGE [None]
  - WEIGHT DECREASED [None]
